FAERS Safety Report 4549689-7 (Version None)
Quarter: 2005Q1

REPORT INFORMATION
  Report Type: 
  Country: None (occurrence: None)
  Receive Date: 20050107
  Receipt Date: 20041208
  Transmission Date: 20050727
  Serious: Yes (Other)
  Sender: FDA-Public Use
  Company Number: USA-04-0252-STR

PATIENT
  Sex: Male

DRUGS (1)
  1. STRIANT [Suspect]

REACTIONS (4)
  - BLOOD PRESSURE INCREASED [None]
  - BONE PAIN [None]
  - OROPHARYNGEAL SWELLING [None]
  - PAIN [None]
